FAERS Safety Report 8876086 (Version 1)
Quarter: 2012Q4

REPORT INFORMATION
  Report Type: 
  Country: US (occurrence: US)
  Receive Date: 20121030
  Receipt Date: 20121030
  Transmission Date: 20130627
  Serious: Yes (Hospitalization)
  Sender: FDA-Public Use
  Company Number: US-B.I. PHARMACEUTICALS,INC./RIDGEFIELD-2012-BP-26734BP

PATIENT
  Age: 65 None
  Sex: Female
  Weight: 63 kg

DRUGS (7)
  1. SPIRIVA [Suspect]
     Indication: CHRONIC OBSTRUCTIVE PULMONARY DISEASE
     Dosage: 18 mcg
     Route: 055
     Dates: start: 2012
  2. BENZONATATE [Concomitant]
     Indication: COUGH
     Dosage: 200 mg
     Route: 048
  3. CALCIUM-VITAMIN D [Concomitant]
     Indication: OSTEOPOROSIS
     Route: 048
  4. OMEPRAZOLE [Concomitant]
     Indication: GASTROOESOPHAGEAL REFLUX DISEASE
     Dosage: 20 mg
     Route: 048
  5. VENTOLIN HFA [Concomitant]
     Indication: BRONCHITIS
     Route: 055
  6. FUROSEMIDE [Concomitant]
     Indication: CARDIAC FAILURE
     Dosage: 20 mg
     Route: 048
  7. LOSARTAN [Concomitant]
     Indication: HYPERTENSION
     Dosage: 50 mg
     Route: 048

REACTIONS (11)
  - Cardiac arrest [Recovered/Resolved]
  - Apnoea [Recovered/Resolved]
  - Gas poisoning [Recovered/Resolved]
  - Oxygen saturation decreased [Recovered/Resolved]
  - Blood potassium decreased [Recovered/Resolved]
  - Confusional state [Recovered/Resolved]
  - Asthenia [Recovered/Resolved]
  - Memory impairment [Recovered/Resolved]
  - Blood potassium increased [Recovered/Resolved]
  - Nervousness [Recovered/Resolved]
  - Feeling jittery [Recovered/Resolved]
